FAERS Safety Report 13157942 (Version 1)
Quarter: 2017Q1

REPORT INFORMATION
  Report Type: Spontaneous
  Country: US (occurrence: US)
  Receive Date: 20170124
  Receipt Date: 20170124
  Transmission Date: 20170428
  Serious: Yes (Hospitalization, Disabling)
  Sender: FDA-Public Use
  Company Number: None

PATIENT
  Age: 13 Year
  Sex: Female
  Weight: 76.5 kg

DRUGS (9)
  1. TRANXENE T-TAB [Concomitant]
     Active Substance: CLORAZEPATE DIPOTASSIUM
  2. DESMOPRESSIN [Concomitant]
     Active Substance: DESMOPRESSIN
  3. TOPAMAX [Concomitant]
     Active Substance: TOPIRAMATE
  4. KLONOPAM WAFER [Concomitant]
  5. CORTISAL [Concomitant]
  6. DIASTAT [Concomitant]
     Active Substance: DIAZEPAM
  7. LAMICTAL [Concomitant]
     Active Substance: LAMOTRIGINE
  8. TRILEPTAL [Suspect]
     Active Substance: OXCARBAZEPINE
     Indication: STATUS EPILEPTICUS
     Dosage: ?          QUANTITY:60 TABLET(S);OTHER FREQUENCY:AM/PM;?
     Route: 048
     Dates: start: 20150205, end: 20161124
  9. SYNTHROID [Concomitant]
     Active Substance: LEVOTHYROXINE SODIUM

REACTIONS (1)
  - Diabetes insipidus [None]

NARRATIVE: CASE EVENT DATE: 20161212
